FAERS Safety Report 6309390-6 (Version None)
Quarter: 2009Q3

REPORT INFORMATION
  Report Type: 
  Country: None (occurrence: None)
  Receive Date: 20090814
  Receipt Date: 20090805
  Transmission Date: 20100115
  Serious: Yes (Death)
  Sender: FDA-Public Use
  Company Number: DE-ROCHE-648350

PATIENT
  Age: 61 Year
  Sex: Female

DRUGS (15)
  1. VALGANCICLOVIR HCL [Suspect]
     Dosage: FREQUENCY REPORTED AS: 1X
     Route: 048
     Dates: start: 20080606
  2. OMEPRAZOL [Concomitant]
     Dosage: DRUG NAME REPORTED AS OMEPRAZOL
  3. CYCLOSPORINE [Concomitant]
  4. PREDNISONE [Concomitant]
     Dosage: DRUG NAME REPORTED AS: PREDNISON (INTERMITTANT), TOTAL DAILY DOSE/ UNIT REPORTED AS: 5/2.5 MG
  5. MMF [Concomitant]
  6. FUROSEMID [Concomitant]
     Dosage: DRUG NAME REPORTED AS: FUROSEMID
  7. REPAGLINIDE [Concomitant]
     Dosage: DRUG NAME REPORTED AS: RAPAGLINIDE
  8. MAGNESIUM [Concomitant]
     Dosage: TOTAL DAILY DOSE/ UNIT REPORTED AS: 2 TBL.
  9. LEVOTHYROXINE [Concomitant]
     Dosage: DRUG NAME REPORTED AS: LEVOTHYROXIN
  10. ALENDRONSAEURE [Concomitant]
     Dosage: DRUG NAME REPORTED AS: ALENDRONSAURE
  11. METOPROLOL [Concomitant]
  12. CINACALCET [Concomitant]
     Dosage: DRUG NAME REPORTED AS: CINACALCEPT
  13. PRAVASTATIN [Concomitant]
  14. VIGANTOLETTEN [Concomitant]
     Dosage: DRUG NAME REPORTED AS: VIGANTOLELETTEN, TOTAL DAILY DOSE/UNIT: 500 IE
  15. AMLODIPINE [Concomitant]

REACTIONS (1)
  - DEATH [None]
